FAERS Safety Report 7367749-2 (Version None)
Quarter: 2011Q1

REPORT INFORMATION
  Report Type: 
  Country: None (occurrence: None)
  Receive Date: 20110322
  Receipt Date: 20110316
  Transmission Date: 20110831
  Serious: Yes (Hospitalization)
  Sender: FDA-Public Use
  Company Number: US-PFIZER INC-2011010003

PATIENT
  Age: 59 Year
  Sex: Female
  Weight: 72 kg

DRUGS (3)
  1. BEVACIZUMAB [Suspect]
     Indication: ENDOMETRIAL CANCER
     Dosage: 10 MG/KG, OVER 30-90 MINUTES ON DAYS 1 AND 15
     Route: 042
     Dates: start: 20101001, end: 20101029
  2. TEMSIROLIMUS [Suspect]
     Indication: ENDOMETRIAL CANCER
     Dosage: 25 MG, ON DAYS 1,8,15, AND 22
     Route: 042
     Dates: start: 20101001, end: 20101029
  3. WARFARIN SODIUM [Concomitant]
     Indication: THROMBOSIS

REACTIONS (2)
  - INTESTINAL FISTULA [None]
  - DUODENAL PERFORATION [None]
